FAERS Safety Report 13474624 (Version 2)
Quarter: 2017Q2

REPORT INFORMATION
  Report Type: Report from Study
  Country: CH (occurrence: CH)
  Receive Date: 20170424
  Receipt Date: 20170503
  Transmission Date: 20170830
  Serious: Yes (Death, Life-Threatening, Hospitalization, Other)
  Sender: FDA-Public Use
  Company Number: CH-OTSUKA-2017_009304

PATIENT
  Age: 9 Decade
  Sex: Male

DRUGS (2)
  1. DECITABINE. [Suspect]
     Active Substance: DECITABINE
     Indication: MYELODYSPLASTIC SYNDROME
     Dosage: 44 MG, IN 1 DAY
     Route: 042
     Dates: start: 20170311, end: 20170320
  2. DECITABINE. [Suspect]
     Active Substance: DECITABINE
     Dosage: 43.5 MG, IN 1 DAY
     Route: 042
     Dates: start: 20170411

REACTIONS (2)
  - Pneumonitis [Fatal]
  - Pulmonary oedema [Fatal]

NARRATIVE: CASE EVENT DATE: 20170325
